FAERS Safety Report 11499901 (Version 1)
Quarter: 2015Q3

REPORT INFORMATION
  Report Type: Spontaneous
  Country: US (occurrence: None)
  Receive Date: 20150911
  Receipt Date: 20150911
  Transmission Date: 20151125
  Serious: Yes (Hospitalization)
  Sender: FDA-Public Use
  Company Number: None

PATIENT
  Age: 54 Year
  Sex: Female

DRUGS (1)
  1. ENBREL [Suspect]
     Active Substance: ETANERCEPT
     Route: 058
     Dates: start: 20140820, end: 20150820

REACTIONS (5)
  - Flushing [None]
  - Altered state of consciousness [None]
  - Ventricular tachycardia [None]
  - Cardiac failure [None]
  - Dizziness [None]

NARRATIVE: CASE EVENT DATE: 20150820
